FAERS Safety Report 12922278 (Version 2)
Quarter: 2016Q4

REPORT INFORMATION
  Report Type: Spontaneous
  Country: CN (occurrence: CN)
  Receive Date: 20161108
  Receipt Date: 20161121
  Transmission Date: 20170207
  Serious: Yes (Hospitalization, Other)
  Sender: FDA-Public Use
  Company Number: CN-BAYER-2016-211809

PATIENT
  Age: 52 Year
  Sex: Female

DRUGS (1)
  1. NEXAVAR [Suspect]
     Active Substance: SORAFENIB
     Indication: HEPATIC CANCER
     Dosage: 400 MG, BID
     Route: 048
     Dates: start: 201008, end: 201603

REACTIONS (13)
  - Furuncle [Recovered/Resolved]
  - Bile duct obstruction [None]
  - Tumour embolism [None]
  - Hypersplenism [None]
  - Genital abscess [Recovered/Resolved]
  - Hypertension [Recovering/Resolving]
  - Cerebral infarction [Recovering/Resolving]
  - Palmar-plantar erythrodysaesthesia syndrome [Recovered/Resolved]
  - Alopecia [None]
  - Portal vein occlusion [None]
  - Metastases to liver [None]
  - Brain stem infarction [Recovering/Resolving]
  - Hepatic cancer [None]

NARRATIVE: CASE EVENT DATE: 201009
